FAERS Safety Report 9718189 (Version 2)
Quarter: 2013Q4

REPORT INFORMATION
  Report Type: Spontaneous
  Country: US (occurrence: US)
  Receive Date: 20131127
  Receipt Date: 20131127
  Transmission Date: 20140711
  Serious: Yes (Other)
  Sender: FDA-Public Use
  Company Number: US-CELGENEUS-163-21880-13110356

PATIENT
  Age: 86 Year
  Sex: Male

DRUGS (14)
  1. REVLIMID [Suspect]
     Indication: MYELODYSPLASTIC SYNDROME
     Dosage: 10 MILLIGRAM
     Route: 048
     Dates: start: 20130215, end: 20130819
  2. PERCOCET [Concomitant]
     Indication: PAIN
     Dosage: 5-325 MG
     Route: 048
     Dates: start: 20130809
  3. ANASTROZOLE [Concomitant]
     Indication: BREAST CANCER
     Dosage: 1 MILLIGRAM
     Route: 048
     Dates: start: 20130809
  4. SALMON [Concomitant]
     Indication: PRODUCT USED FOR UNKNOWN INDICATION
     Dosage: 200 UNIT/ACT, ONE SPRAY EACH NOSTRIL
     Route: 045
     Dates: start: 20130809
  5. SINEMET [Concomitant]
     Indication: PARKINSON^S DISEASE
     Dosage: 25-100 MG
     Route: 065
     Dates: start: 20130809
  6. COMBIGAN [Concomitant]
     Indication: GLAUCOMA
     Dosage: 0.2-0.5%, 1 DROP
     Route: 047
     Dates: start: 20130809
  7. FLUOROMETHOLONE [Concomitant]
     Indication: GLAUCOMA
     Dosage: 1 DROP, EACH EYE
     Route: 047
     Dates: start: 20130809
  8. FUROSEMIDE [Concomitant]
     Indication: OEDEMA
     Dosage: 20 MILLIGRAM
     Route: 048
     Dates: start: 20130809
  9. MULTIVITAMINS [Concomitant]
     Indication: SUPPLEMENTATION THERAPY
     Route: 048
     Dates: start: 20130809
  10. PRAMIPEXOLE DIHYDROCHLORIDE [Concomitant]
     Indication: PARKINSON^S DISEASE
     Dosage: 4.5 MILLIGRAM
     Route: 048
     Dates: start: 20130809
  11. REFRESH [Concomitant]
     Indication: DRY EYE
     Dosage: 1 DROP, EACH EYE
     Route: 047
     Dates: start: 20130809
  12. VITAMIN B-1 [Concomitant]
     Indication: SUPPLEMENTATION THERAPY
     Dosage: 100 MILLIGRAM
     Route: 048
     Dates: start: 20130809
  13. REMERON [Concomitant]
     Indication: DEPRESSION
     Dosage: 7.8 MILLIGRAM
     Route: 048
     Dates: start: 20130809
  14. ASPIRINE [Concomitant]
     Indication: CORONARY ARTERY DISEASE
     Dosage: 81 MILLIGRAM
     Route: 048
     Dates: start: 20130809

REACTIONS (2)
  - Breast cancer male [Unknown]
  - Parkinson^s disease [Unknown]
